FAERS Safety Report 6935239-4 (Version None)
Quarter: 2010Q3

REPORT INFORMATION
  Report Type: 
  Country: None (occurrence: None)
  Receive Date: 20100822
  Receipt Date: 20100520
  Transmission Date: 20110219
  Serious: No
  Sender: FDA-Public Use
  Company Number: US-ALLERGAN-1006693US

PATIENT

DRUGS (1)
  1. COMBIGAN [Suspect]
     Indication: OPEN ANGLE GLAUCOMA

REACTIONS (2)
  - HERPES OPHTHALMIC [None]
  - INTRAOCULAR PRESSURE INCREASED [None]
